FAERS Safety Report 8618554-8 (Version None)
Quarter: 2012Q3

REPORT INFORMATION
  Report Type: 
  Country: None (occurrence: None)
  Receive Date: 20120824
  Receipt Date: 20120817
  Transmission Date: 20120928
  Serious: No
  Sender: FDA-Public Use
  Company Number: US-PFIZER INC-2012203228

PATIENT
  Age: 59 Year
  Sex: Male
  Weight: 123 kg

DRUGS (11)
  1. LEVOTHYROXINE [Concomitant]
     Dosage: 25 UG
  2. LEXAPRO [Concomitant]
     Dosage: 5 MG
  3. HYDROCORT [Concomitant]
     Dosage: 5 MG
  4. GENOTROPIN [Suspect]
     Dosage: 0.2 MG, 1X/DAY
     Route: 058
  5. ZOLOFT [Concomitant]
     Dosage: 25 MG
  6. ANDROGEL [Concomitant]
     Dosage: UNK
  7. DESMOPRESSIN [Concomitant]
     Dosage: 0.1 MG
  8. XANAX XR [Concomitant]
     Dosage: 0.5 MG
  9. METFORMIN [Concomitant]
     Dosage: 500 MG
  10. LORTAB [Concomitant]
     Dosage: UNK
  11. QUINAPRIL [Concomitant]
     Dosage: 10 MG

REACTIONS (5)
  - MUSCULOSKELETAL PAIN [None]
  - FATIGUE [None]
  - NECK PAIN [None]
  - ANXIETY [None]
  - DEPRESSION [None]
